FAERS Safety Report 12054201 (Version 1)
Quarter: 2016Q1

REPORT INFORMATION
  Report Type: Spontaneous
  Country: US (occurrence: US)
  Receive Date: 20160209
  Receipt Date: 20160209
  Transmission Date: 20160526
  Serious: Yes (Other)
  Sender: FDA-Public Use
  Company Number: US-JNJFOC-20160121729

PATIENT
  Age: 7 Year
  Sex: Male
  Weight: 32.66 kg

DRUGS (3)
  1. CHILDRENS MOTRIN [Suspect]
     Active Substance: IBUPROFEN
     Indication: PYREXIA
     Dosage: 1 TEASPOON JUST ONCE
     Route: 048
     Dates: start: 20160126, end: 20160126
  2. CHILDRENS MOTRIN [Suspect]
     Active Substance: IBUPROFEN
     Route: 048
  3. LEVONAIR [Concomitant]
     Indication: BLOOD INSULIN
     Dosage: WHILE EATING CRAB
     Route: 065

REACTIONS (2)
  - Blood glucose increased [None]
  - Blood glucose abnormal [Recovering/Resolving]

NARRATIVE: CASE EVENT DATE: 20160126
